FAERS Safety Report 24921923 (Version 1)
Quarter: 2025Q1

REPORT INFORMATION
  Report Type: Spontaneous
  Country: AU (occurrence: AU)
  Receive Date: 20250204
  Receipt Date: 20250204
  Transmission Date: 20250408
  Serious: Yes (Hospitalization, Other)
  Sender: RANBAXY
  Company Number: AU-SUN PHARMACEUTICAL INDUSTRIES LTD-2025R1-491747

PATIENT
  Age: 59 Year
  Sex: Female
  Weight: 78 kg

DRUGS (30)
  1. EPOPROSTENOL [Suspect]
     Active Substance: EPOPROSTENOL
     Indication: Pulmonary arterial hypertension
     Route: 042
  2. EPOPROSTENOL [Suspect]
     Active Substance: EPOPROSTENOL
     Route: 042
  3. EPOPROSTENOL [Suspect]
     Active Substance: EPOPROSTENOL
     Route: 042
  4. AMOXICILLIN\CLAVULANATE POTASSIUM [Suspect]
     Active Substance: AMOXICILLIN\CLAVULANATE POTASSIUM
     Indication: Colonic angioectasia
     Route: 048
  5. AMOXICILLIN\CLAVULANATE POTASSIUM [Suspect]
     Active Substance: AMOXICILLIN\CLAVULANATE POTASSIUM
     Indication: Diverticulitis
  6. FUROSEMIDE [Suspect]
     Active Substance: FUROSEMIDE
     Indication: Fluid retention
     Route: 065
  7. MACITENTAN [Suspect]
     Active Substance: MACITENTAN
     Indication: Pulmonary arterial hypertension
     Route: 048
  8. UPTRAVI [Suspect]
     Active Substance: SELEXIPAG
     Indication: Product used for unknown indication
     Dosage: UNK UNK, QD
     Route: 048
  9. UPTRAVI [Suspect]
     Active Substance: SELEXIPAG
     Indication: Pulmonary arterial hypertension
     Dosage: 200 MILLIGRAM, QD
     Route: 048
  10. UPTRAVI [Suspect]
     Active Substance: SELEXIPAG
     Dosage: 400 MILLIGRAM, QD
     Route: 048
  11. UPTRAVI [Suspect]
     Active Substance: SELEXIPAG
     Dosage: 600 MILLIGRAM, QD
     Route: 048
  12. UPTRAVI [Suspect]
     Active Substance: SELEXIPAG
     Dosage: 1000 MILLIGRAM, QD
     Route: 048
  13. UPTRAVI [Suspect]
     Active Substance: SELEXIPAG
     Dosage: 1200 MILLIGRAM, QD
     Route: 048
  14. UPTRAVI [Suspect]
     Active Substance: SELEXIPAG
     Dosage: 1400 MILLIGRAM, QD
     Route: 048
  15. UPTRAVI [Suspect]
     Active Substance: SELEXIPAG
     Dosage: UNK UNK, QD
     Route: 048
     Dates: start: 20240405
  16. ALVESCO [Concomitant]
     Active Substance: CICLESONIDE
     Indication: Product used for unknown indication
     Route: 065
  17. ELIQUIS [Concomitant]
     Active Substance: APIXABAN
     Indication: Thrombosis
     Route: 048
     Dates: start: 20230928
  18. OXYCODONE HYDROCHLORIDE [Concomitant]
     Active Substance: OXYCODONE HYDROCHLORIDE
     Indication: Pain
     Route: 065
  19. EUTROXSIG [Concomitant]
     Active Substance: LEVOTHYROXINE SODIUM
     Indication: Thyroid hormone replacement therapy
     Route: 048
  20. LIPITOR [Concomitant]
     Active Substance: ATORVASTATIN CALCIUM
     Indication: Blood cholesterol
     Dosage: 20 MILLIGRAM, QD
     Route: 048
  21. MICARDIS [Concomitant]
     Active Substance: TELMISARTAN
     Indication: Product used for unknown indication
     Route: 065
  22. OSTEVIT D [Concomitant]
     Indication: Vitamin supplementation
     Dosage: UNK, 2/WEEK
     Route: 065
  23. PREDNISOLONE [Concomitant]
     Active Substance: PREDNISOLONE
     Indication: Respiratory disorder
     Route: 065
  24. PREDNISOLONE [Concomitant]
     Active Substance: PREDNISOLONE
     Route: 065
  25. PANTOPRAZOLE SODIUM [Concomitant]
     Active Substance: PANTOPRAZOLE SODIUM
     Indication: Respiratory disorder
     Route: 048
  26. TADALAFIL [Concomitant]
     Active Substance: TADALAFIL
     Indication: Pulmonary arterial hypertension
     Dosage: 20 MILLIGRAM, QD
     Route: 048
  27. THYROXINE [Concomitant]
     Active Substance: LEVOTHYROXINE
     Indication: Product used for unknown indication
     Route: 048
  28. THYROXINE [Concomitant]
     Active Substance: LEVOTHYROXINE
     Route: 048
     Dates: start: 2024
  29. HYDROXOCOBALAMIN [Concomitant]
     Active Substance: HYDROXOCOBALAMIN
     Indication: Vitamin supplementation
     Route: 065
  30. POTASSIUM [Concomitant]
     Active Substance: POTASSIUM
     Indication: Vitamin supplementation
     Dosage: UNK, QD
     Route: 048

REACTIONS (56)
  - Abdominal pain [Recovered/Resolved]
  - Weight decreased [Unknown]
  - Walking distance test abnormal [Recovering/Resolving]
  - Vomiting [Unknown]
  - Urinary tract infection [Recovered/Resolved]
  - Toothache [Not Recovered/Not Resolved]
  - Skin weeping [Unknown]
  - Skin laceration [Unknown]
  - Skin discolouration [Unknown]
  - Respiratory tract infection [Recovering/Resolving]
  - Respiratory rate increased [Recovered/Resolved]
  - Rash erythematous [Recovering/Resolving]
  - Pulmonary arterial hypertension [Unknown]
  - Pruritus [Recovered/Resolved]
  - Proctitis [Unknown]
  - Poor quality sleep [Recovered/Resolved]
  - Pericardial effusion [Unknown]
  - Periarthritis [Unknown]
  - Pain in jaw [Recovered/Resolved]
  - Pain [Recovered/Resolved]
  - Oxygen therapy [Unknown]
  - Nausea [Recovered/Resolved]
  - Oxygen saturation decreased [Recovered/Resolved]
  - Nasopharyngitis [Not Recovered/Not Resolved]
  - Monoclonal gammopathy [Unknown]
  - Malaise [Recovered/Resolved]
  - Hypotension [Recovered/Resolved]
  - Hypergammaglobulinaemia benign monoclonal [Unknown]
  - Hospitalisation [Unknown]
  - Hepatic cyst [Unknown]
  - Heart rate increased [Recovered/Resolved]
  - Headache [Recovering/Resolving]
  - Gastrooesophageal reflux disease [Recovered/Resolved]
  - Gastrointestinal pain [Not Recovered/Not Resolved]
  - Gait disturbance [Not Recovered/Not Resolved]
  - Flushing [Recovered/Resolved]
  - Fluid retention [Recovered/Resolved]
  - Fatigue [Unknown]
  - Epistaxis [Recovered/Resolved]
  - Emotional distress [Recovered/Resolved]
  - Dyspnoea exertional [Unknown]
  - Drug intolerance [Not Recovered/Not Resolved]
  - Drug hypersensitivity [Recovering/Resolving]
  - Dizziness [Recovered/Resolved]
  - Diverticulitis [Recovered/Resolved]
  - Depressed mood [Recovered/Resolved]
  - Dehydration [Unknown]
  - COVID-19 [Recovered/Resolved]
  - Colonic angioectasia [Recovering/Resolving]
  - Colitis [Unknown]
  - Carditis [Not Recovered/Not Resolved]
  - Bone pain [Recovered/Resolved]
  - Balance disorder [Recovered/Resolved]
  - Back pain [Recovered/Resolved]
  - Asthma [Unknown]
  - Abdominal pain upper [Recovered/Resolved]

NARRATIVE: CASE EVENT DATE: 20221225
